FAERS Safety Report 8225426-X (Version None)
Quarter: 2012Q1

REPORT INFORMATION
  Report Type: 
  Country: None (occurrence: None)
  Receive Date: 20120321
  Receipt Date: 20120315
  Transmission Date: 20120608
  Serious: Yes (Death, Other)
  Sender: FDA-Public Use
  Company Number: US-ELI_LILLY_AND_COMPANY-US201203004530

PATIENT
  Sex: Male

DRUGS (3)
  1. ALIMTA [Suspect]
     Indication: LUNG CARCINOMA CELL TYPE UNSPECIFIED STAGE IV
     Dosage: 500 MG/M2, UNKNOWN
     Dates: start: 20120305
  2. VITAMIN B-12 [Concomitant]
     Dosage: UNK, UNKNOWN
  3. FOLIC ACID [Concomitant]
     Dosage: UNK, UNKNOWN

REACTIONS (3)
  - CARDIAC ARREST [None]
  - DEATH [None]
  - PANCYTOPENIA [None]
